FAERS Safety Report 24162011 (Version 1)
Quarter: 2024Q3

REPORT INFORMATION
  Report Type: Spontaneous
  Country: CH (occurrence: CH)
  Receive Date: 20240801
  Receipt Date: 20240801
  Transmission Date: 20241017
  Serious: Yes (Hospitalization)
  Sender: AMERICAN REGENT
  Company Number: CH-AMERICAN REGENT INC-2024002896

PATIENT
  Age: 74 Year
  Sex: Female

DRUGS (1)
  1. FERINJECT [Suspect]
     Active Substance: FERRIC CARBOXYMALTOSE
     Indication: Product used for unknown indication
     Dosage: 100 MG PER WEEK REPEATED THREE TIMES FOR THREE WEEKS; THEN FOURTH INFUSION ON 25-MAY-2024 (100 MILLI
     Route: 042
     Dates: end: 20240525

REACTIONS (6)
  - Temperature intolerance [Recovered/Resolved]
  - Oedema peripheral [Recovered/Resolved]
  - Erythema [Recovered/Resolved]
  - Diarrhoea [Recovered/Resolved]
  - Hypotension [Recovered/Resolved]
  - Hypophosphataemia [Recovered/Resolved]

NARRATIVE: CASE EVENT DATE: 20240525
